FAERS Safety Report 7574487-X (Version None)
Quarter: 2011Q2

REPORT INFORMATION
  Report Type: 
  Country: None (occurrence: None)
  Receive Date: 20110627
  Receipt Date: 20100116
  Transmission Date: 20111010
  Serious: Yes (Death, Other)
  Sender: FDA-Public Use
  Company Number: US-BAYER-2011-008467

PATIENT
  Age: 75 Year
  Sex: Male
  Weight: 77 kg

DRUGS (11)
  1. ACETYLCYSTEINE [Concomitant]
     Dosage: 600MG FOR 4 DOSES
     Route: 048
     Dates: start: 20070731, end: 20070731
  2. SODIUM BICARBONATE [Concomitant]
     Dosage: 1ML/KG FOR 6 HOURS
  3. TRASYLOL [Suspect]
     Indication: CORONARY ARTERY BYPASS
     Dosage: UNSPECIFIED TEST DOSE
     Route: 042
     Dates: start: 20070803, end: 20070803
  4. HEPARIN [Concomitant]
     Dosage: UNK
     Dates: start: 20070803, end: 20070803
  5. INSULIN [Concomitant]
     Dosage: UNK
     Route: 042
     Dates: start: 20070803, end: 20070803
  6. GLYBURIDE [Concomitant]
     Indication: DIABETES MELLITUS
     Dosage: 4 MG, BID
     Route: 048
     Dates: start: 20060101
  7. PROTAMINE SULFATE [Concomitant]
     Dosage: UNK
     Dates: start: 20070803, end: 20070803
  8. SODIUM BICARBONATE [Concomitant]
     Dosage: 3ML/KG OVER 1HR
     Route: 042
     Dates: start: 20070731, end: 20070731
  9. TRASYLOL [Suspect]
     Dosage: LOADING DOSE - 200ML,  THEN 100ML/HR INFUSION
     Route: 042
     Dates: start: 20070802, end: 20070802
  10. VANCOMYCIN [Concomitant]
     Dosage: 1 GRAM
     Route: 042
     Dates: start: 20050803
  11. BLOOD AND RELATED PRODUCTS [Concomitant]
     Dosage: 2 U, UNK
     Dates: start: 20070803

REACTIONS (14)
  - DEPRESSION [None]
  - ANHEDONIA [None]
  - FEAR [None]
  - RENAL IMPAIRMENT [None]
  - UNEVALUABLE EVENT [None]
  - RENAL INJURY [None]
  - CARDIAC DISORDER [None]
  - PAIN [None]
  - RENAL FAILURE [None]
  - ORGAN FAILURE [None]
  - CEREBROVASCULAR ACCIDENT [None]
  - ANXIETY [None]
  - DEATH [None]
  - INJURY [None]
